FAERS Safety Report 4453064-3 (Version None)
Quarter: 2004Q3

REPORT INFORMATION
  Report Type: 
  Country: None (occurrence: None)
  Receive Date: 20040813
  Receipt Date: 20040504
  Transmission Date: 20050211
  Serious: No
  Sender: FDA-Public Use
  Company Number: S04-USA-03280-01

PATIENT
  Age: 90 Year
  Sex: Female

DRUGS (17)
  1. NAMENDA [Suspect]
     Indication: DEMENTIA ALZHEIMER'S TYPE
     Dosage: 10 MG QAM PO
     Route: 048
     Dates: start: 20040430
  2. NAMENDA [Suspect]
     Indication: DEMENTIA ALZHEIMER'S TYPE
     Dosage: 5 MG QHS PO
     Route: 048
     Dates: start: 20040430
  3. NAMENDA [Suspect]
     Indication: DEMENTIA ALZHEIMER'S TYPE
     Dosage: 5 MG QD PO
     Route: 048
     Dates: start: 20040326, end: 20040402
  4. NAMENDA [Suspect]
     Indication: DEMENTIA ALZHEIMER'S TYPE
     Dosage: 5 MG BID PO
     Route: 048
     Dates: start: 20040402, end: 20040409
  5. NAMENDA [Suspect]
     Indication: DEMENTIA ALZHEIMER'S TYPE
     Dosage: 10 MG QAM PO
     Route: 048
     Dates: start: 20040410, end: 20040429
  6. LASIX [Concomitant]
  7. COUMADIN [Concomitant]
  8. PAXIL [Concomitant]
  9. QUININE [Concomitant]
  10. RISPERDAL [Concomitant]
  11. BEXTRA [Concomitant]
  12. FLUNISOLIDE [Concomitant]
  13. ARANESP [Concomitant]
  14. VITAMIN B-12 [Concomitant]
  15. VITAMIN E [Concomitant]
  16. IRON [Concomitant]
  17. ALLEGRA [Concomitant]

REACTIONS (3)
  - DIZZINESS [None]
  - DYSPNOEA [None]
  - HYPOTENSION [None]
